FAERS Safety Report 5854853-0 (Version None)
Quarter: 2008Q3

REPORT INFORMATION
  Report Type: 
  Country: None (occurrence: None)
  Receive Date: 20080822
  Receipt Date: 20080815
  Transmission Date: 20090109
  Serious: Yes (Other)
  Sender: FDA-Public Use
  Company Number: US-PFIZER INC-2008068762

PATIENT
  Sex: Female
  Weight: 53.181 kg

DRUGS (3)
  1. XALATAN [Suspect]
     Indication: GLAUCOMA
     Route: 047
  2. BETOPTIC [Suspect]
     Indication: GLAUCOMA
     Route: 047
  3. AZOPT [Suspect]
     Indication: GLAUCOMA
     Route: 047

REACTIONS (4)
  - CATARACT [None]
  - DRUG INEFFECTIVE [None]
  - INTRAOCULAR PRESSURE INCREASED [None]
  - MEDICATION ERROR [None]
